FAERS Safety Report 16254159 (Version 1)
Quarter: 2019Q2

REPORT INFORMATION
  Report Type: Spontaneous
  Country: SA (occurrence: SA)
  Receive Date: 20190430
  Receipt Date: 20190430
  Transmission Date: 20190711
  Serious: Yes (Death, Hospitalization)
  Sender: FDA-Public Use
  Company Number: PHHY2019SA097690

PATIENT
  Age: 67 Year
  Sex: Male

DRUGS (1)
  1. ENTRESTO [Suspect]
     Active Substance: SACUBITRIL\VALSARTAN
     Indication: ISCHAEMIC CARDIOMYOPATHY
     Dosage: 50 MG, BID
     Route: 065
     Dates: start: 201803, end: 201903

REACTIONS (5)
  - Dizziness [Recovered/Resolved]
  - Pneumonia [Fatal]
  - Hypotension [Recovered/Resolved]
  - Drug intolerance [Unknown]
  - Dengue haemorrhagic fever [Unknown]

NARRATIVE: CASE EVENT DATE: 201803
